FAERS Safety Report 25162399 (Version 1)
Quarter: 2025Q2

REPORT INFORMATION
  Report Type: Spontaneous
  Country: AT (occurrence: AT)
  Receive Date: 20250404
  Receipt Date: 20250404
  Transmission Date: 20250716
  Serious: Yes (Other)
  Sender: AMGEN
  Company Number: AT-AMGEN-AUTSP2025059988

PATIENT
  Age: 62 Year
  Sex: Male

DRUGS (7)
  1. PANITUMUMAB [Suspect]
     Active Substance: PANITUMUMAB
     Indication: Colon cancer metastatic
     Route: 065
     Dates: start: 202309, end: 202312
  2. PANITUMUMAB [Suspect]
     Active Substance: PANITUMUMAB
     Route: 065
     Dates: start: 202403
  3. PANITUMUMAB [Suspect]
     Active Substance: PANITUMUMAB
     Route: 065
     Dates: start: 202404
  4. PANITUMUMAB [Suspect]
     Active Substance: PANITUMUMAB
     Route: 065
     Dates: start: 202409, end: 202412
  5. LEUCOVORIN [Suspect]
     Active Substance: LEUCOVORIN\LEUCOVORIN CALCIUM
     Indication: Colon cancer metastatic
     Route: 065
     Dates: start: 202309
  6. FLUOROURACIL [Suspect]
     Active Substance: FLUOROURACIL
     Indication: Colon cancer metastatic
     Route: 065
     Dates: start: 202309
  7. OXALIPLATIN [Suspect]
     Active Substance: OXALIPLATIN
     Indication: Colon cancer metastatic
     Route: 065
     Dates: start: 202309, end: 202412

REACTIONS (6)
  - Thrombocytopenia [Unknown]
  - Polyneuropathy [Unknown]
  - Metastases to liver [Unknown]
  - Therapy partial responder [Unknown]
  - Dermatitis acneiform [Unknown]
  - Skin toxicity [Unknown]

NARRATIVE: CASE EVENT DATE: 20231001
